FAERS Safety Report 21530843 (Version 1)
Quarter: 2022Q4

REPORT INFORMATION
  Report Type: Spontaneous
  Country: US (occurrence: None)
  Receive Date: 20221030
  Receipt Date: 20221030
  Transmission Date: 20230113
  Serious: Yes (Other)
  Sender: FDA-Public Use
  Company Number: None

PATIENT
  Age: 56 Year
  Sex: Male

DRUGS (1)
  1. ATENOLOL [Suspect]
     Active Substance: ATENOLOL
     Dates: start: 20220721

REACTIONS (3)
  - Chest discomfort [None]
  - Loss of consciousness [None]
  - Product substitution issue [None]

NARRATIVE: CASE EVENT DATE: 20220721
